FAERS Safety Report 22097052 (Version 1)
Quarter: 2023Q1

REPORT INFORMATION
  Report Type: Report from Study
  Country: US (occurrence: US)
  Receive Date: 20230315
  Receipt Date: 20230315
  Transmission Date: 20230417
  Serious: Yes (Life-Threatening, Hospitalization)
  Sender: FDA-Public Use
  Company Number: US-ORPHANEU-2023001362

PATIENT

DRUGS (1)
  1. CARBAGLU [Suspect]
     Active Substance: CARGLUMIC ACID
     Indication: Methylmalonic aciduria
     Dosage: 100 MILLIGRAM, BID
     Dates: start: 2023

REACTIONS (1)
  - Respiratory rate increased [Unknown]

NARRATIVE: CASE EVENT DATE: 20230101
